FAERS Safety Report 6791325-3 (Version None)
Quarter: 2010Q2

REPORT INFORMATION
  Report Type: 
  Country: None (occurrence: None)
  Receive Date: 20100624
  Receipt Date: 20100616
  Transmission Date: 20101027
  Serious: Yes (Other)
  Sender: FDA-Public Use
  Company Number: US-BAYER-201025880NA

PATIENT
  Age: 38 Year
  Sex: Female

DRUGS (1)
  1. MAGNEVIST [Suspect]
     Indication: MUSCULOSKELETAL PAIN
     Route: 042
     Dates: start: 20100517, end: 20100517

REACTIONS (10)
  - ASTHENIA [None]
  - DISCOMFORT [None]
  - DISTURBANCE IN ATTENTION [None]
  - DYSGEUSIA [None]
  - FEELING ABNORMAL [None]
  - FEELING HOT [None]
  - MENTAL STATUS CHANGES [None]
  - NEUROLOGICAL EXAMINATION ABNORMAL [None]
  - NEUROLOGICAL SYMPTOM [None]
  - PAIN [None]
